FAERS Safety Report 6302315-9 (Version None)
Quarter: 2009Q3

REPORT INFORMATION
  Report Type: 
  Country: None (occurrence: None)
  Receive Date: 20090810
  Receipt Date: 20090730
  Transmission Date: 20100115
  Serious: No
  Sender: FDA-Public Use
  Company Number: CA-B.I. PHARMACEUTICALS,INC./RIDGEFIELD-2009-CN-00468CN

PATIENT
  Age: 96 Year
  Sex: Male

DRUGS (6)
  1. SPIRIVA [Suspect]
  2. PLAVIX [Concomitant]
     Dates: start: 20040101
  3. AVAPRO [Concomitant]
     Dates: start: 20040101
  4. NORVASC [Concomitant]
     Dates: start: 20040101
  5. FLOVENT [Concomitant]
     Dosage: 2 PUFFS QID
     Dates: start: 20080101
  6. ATROVENT [Concomitant]
     Dosage: 2 PUFFS QID

REACTIONS (2)
  - BRONCHOSPASM [None]
  - DYSPNOEA [None]
